FAERS Safety Report 7079977-4 (Version None)
Quarter: 2010Q4

REPORT INFORMATION
  Report Type: 
  Country: None (occurrence: None)
  Receive Date: 20101102
  Receipt Date: 20101028
  Transmission Date: 20110411
  Serious: Yes (Hospitalization, Other)
  Sender: FDA-Public Use
  Company Number: BR-ABBOTT-09P-020-0613246-00

PATIENT
  Sex: Male
  Weight: 79 kg

DRUGS (7)
  1. HUMIRA [Suspect]
     Indication: CROHN'S DISEASE
     Route: 058
     Dates: start: 20090801, end: 20100515
  2. HUMIRA [Suspect]
     Route: 058
  3. HUMIRA [Suspect]
     Route: 058
  4. OMEPRAZOLE [Concomitant]
     Indication: PROPHYLAXIS AGAINST GASTROINTESTINAL ULCER
     Route: 048
  5. MESALAZINE [Concomitant]
     Indication: CROHN'S DISEASE
     Route: 048
  6. AZATHIOPRINE [Concomitant]
     Indication: CROHN'S DISEASE
     Route: 048
  7. CIPROFLOXACIN [Concomitant]
     Indication: CROHN'S DISEASE
     Route: 048
     Dates: start: 20090901

REACTIONS (4)
  - ANAEMIA [None]
  - INFLAMMATORY BOWEL DISEASE [None]
  - TRANSFUSION [None]
  - URINARY TRACT INFECTION [None]
